FAERS Safety Report 11564648 (Version 1)
Quarter: 2015Q3

REPORT INFORMATION
  Report Type: Spontaneous
  Country: US (occurrence: US)
  Receive Date: 20150928
  Receipt Date: 20150928
  Transmission Date: 20151125
  Serious: No
  Sender: FDA-Public Use
  Company Number: US-PFIZER INC-2015309926

PATIENT
  Age: 65 Year
  Sex: Male
  Weight: 74 kg

DRUGS (1)
  1. LIPITOR [Suspect]
     Active Substance: ATORVASTATIN CALCIUM
     Indication: ARTERIAL OCCLUSIVE DISEASE
     Dosage: UNK
     Dates: start: 2000

REACTIONS (4)
  - Memory impairment [Not Recovered/Not Resolved]
  - Arthralgia [Not Recovered/Not Resolved]
  - Myalgia [Unknown]
  - Pain in extremity [Unknown]
